FAERS Safety Report 18459529 (Version 11)
Quarter: 2024Q1

REPORT INFORMATION
  Report Type: Spontaneous
  Country: US (occurrence: US)
  Receive Date: 20201103
  Receipt Date: 20240314
  Transmission Date: 20240410
  Serious: Yes (Hospitalization, Other)
  Sender: FDA-Public Use
  Company Number: US-PFIZER INC-2020425133

PATIENT
  Age: 71 Year
  Sex: Male

DRUGS (12)
  1. XELJANZ [Suspect]
     Active Substance: TOFACITINIB CITRATE
     Indication: Rheumatoid arthritis
     Dosage: UNK
  2. XELJANZ [Suspect]
     Active Substance: TOFACITINIB CITRATE
     Dosage: 5 MG
  3. ALBUTEROL [Concomitant]
     Active Substance: ALBUTEROL
  4. ATORVASTATIN [Concomitant]
     Active Substance: ATORVASTATIN
  5. AMLODIPINE [Concomitant]
     Active Substance: AMLODIPINE BESYLATE
  6. BUDESONIDE [Concomitant]
     Active Substance: BUDESONIDE
  7. CARVEDILOL [Concomitant]
     Active Substance: CARVEDILOL
  8. WARFARIN [Concomitant]
     Active Substance: WARFARIN
  9. FAMOTIDINE [Concomitant]
     Active Substance: FAMOTIDINE
  10. FOLIC ACID [Concomitant]
     Active Substance: FOLIC ACID
  11. METHYLPHENIDATE [Concomitant]
     Active Substance: METHYLPHENIDATE
  12. PREDNISONE [Concomitant]
     Active Substance: PREDNISONE

REACTIONS (12)
  - Cardiac disorder [Unknown]
  - Cardiac failure [Unknown]
  - Disease recurrence [Unknown]
  - Blood glucose decreased [Unknown]
  - Hip fracture [Recovering/Resolving]
  - Cataract [Unknown]
  - Auditory disorder [Unknown]
  - Bradyphrenia [Unknown]
  - Restless legs syndrome [Unknown]
  - Pain [Recovering/Resolving]
  - Insomnia [Unknown]
  - Osteoarthritis [Unknown]
